FAERS Safety Report 25281789 (Version 1)
Quarter: 2025Q2

REPORT INFORMATION
  Report Type: Spontaneous
  Country: TN (occurrence: TN)
  Receive Date: 20250508
  Receipt Date: 20250508
  Transmission Date: 20250717
  Serious: Yes (Life-Threatening, Hospitalization)
  Sender: STRIDES
  Company Number: None

PATIENT
  Age: 8 Year
  Sex: Male

DRUGS (25)
  1. PREDNISOLONE [Suspect]
     Active Substance: PREDNISOLONE
     Indication: Burkitt^s lymphoma stage IV
     Route: 065
  2. PREDNISOLONE [Suspect]
     Active Substance: PREDNISOLONE
     Indication: Nasopharyngeal cancer stage IV
  3. PREDNISOLONE [Suspect]
     Active Substance: PREDNISOLONE
     Indication: Metastases to bone
  4. PREDNISOLONE [Suspect]
     Active Substance: PREDNISOLONE
     Indication: Metastases to eye
  5. PREDNISOLONE [Suspect]
     Active Substance: PREDNISOLONE
     Indication: Metastases to mouth
  6. METHOTREXATE [Suspect]
     Active Substance: METHOTREXATE
     Indication: Burkitt^s lymphoma stage IV
     Route: 065
  7. METHOTREXATE [Suspect]
     Active Substance: METHOTREXATE
     Indication: Nasopharyngeal cancer stage IV
  8. METHOTREXATE [Suspect]
     Active Substance: METHOTREXATE
     Indication: Metastases to bone
  9. METHOTREXATE [Suspect]
     Active Substance: METHOTREXATE
     Indication: Metastases to eye
  10. METHOTREXATE [Suspect]
     Active Substance: METHOTREXATE
     Indication: Metastases to mouth
  11. ADRIAMYCIN [Suspect]
     Active Substance: DOXORUBICIN HYDROCHLORIDE
     Indication: Burkitt^s lymphoma stage IV
     Route: 065
  12. ADRIAMYCIN [Suspect]
     Active Substance: DOXORUBICIN HYDROCHLORIDE
     Indication: Metastases to bone
  13. ADRIAMYCIN [Suspect]
     Active Substance: DOXORUBICIN HYDROCHLORIDE
     Indication: Nasopharyngeal cancer stage IV
  14. ADRIAMYCIN [Suspect]
     Active Substance: DOXORUBICIN HYDROCHLORIDE
     Indication: Metastases to eye
  15. ADRIAMYCIN [Suspect]
     Active Substance: DOXORUBICIN HYDROCHLORIDE
     Indication: Metastases to mouth
  16. CYCLOPHOSPHAMIDE [Suspect]
     Active Substance: CYCLOPHOSPHAMIDE
     Indication: Burkitt^s lymphoma stage IV
     Route: 065
  17. CYCLOPHOSPHAMIDE [Suspect]
     Active Substance: CYCLOPHOSPHAMIDE
     Indication: Metastases to bone
  18. CYCLOPHOSPHAMIDE [Suspect]
     Active Substance: CYCLOPHOSPHAMIDE
     Indication: Metastases to eye
  19. CYCLOPHOSPHAMIDE [Suspect]
     Active Substance: CYCLOPHOSPHAMIDE
     Indication: Nasopharyngeal cancer stage IV
  20. CYCLOPHOSPHAMIDE [Suspect]
     Active Substance: CYCLOPHOSPHAMIDE
     Indication: Metastases to mouth
  21. VINCRISTINE [Suspect]
     Active Substance: VINCRISTINE
     Indication: Burkitt^s lymphoma stage IV
     Route: 065
  22. VINCRISTINE [Suspect]
     Active Substance: VINCRISTINE
     Indication: Metastases to bone
  23. VINCRISTINE [Suspect]
     Active Substance: VINCRISTINE
     Indication: Nasopharyngeal cancer stage IV
  24. VINCRISTINE [Suspect]
     Active Substance: VINCRISTINE
     Indication: Metastases to eye
  25. VINCRISTINE [Suspect]
     Active Substance: VINCRISTINE
     Indication: Metastases to mouth

REACTIONS (2)
  - Coma [Recovered/Resolved]
  - Posterior reversible encephalopathy syndrome [Unknown]
